FAERS Safety Report 6613872-7 (Version None)
Quarter: 2010Q1

REPORT INFORMATION
  Report Type: 
  Country: None (occurrence: None)
  Receive Date: 20100304
  Receipt Date: 20100303
  Transmission Date: 20100710
  Serious: Yes (Congenital Anomaly)
  Sender: FDA-Public Use
  Company Number: A0843309A

PATIENT
  Sex: Male

DRUGS (5)
  1. LAMOTRIGINE [Suspect]
     Indication: BIPOLAR DISORDER
     Dosage: 300MG PER DAY
  2. RISPERIDONE [Concomitant]
     Dosage: 1MG PER DAY
  3. FOLIC ACID [Concomitant]
     Dosage: 2MG PER DAY
  4. VITAMIN AND MINERAL PRENATAL SUPPLEMENT W/ FOLIC ACID CAP [Concomitant]
  5. ABILIFY [Concomitant]
     Dosage: 10MG PER DAY

REACTIONS (3)
  - DRUG EXPOSURE DURING PREGNANCY [None]
  - HYPOSPADIAS [None]
  - LIVE BIRTH [None]
